FAERS Safety Report 11842161 (Version 1)
Quarter: 2015Q4

REPORT INFORMATION
  Report Type: Spontaneous
  Country: US (occurrence: US)
  Receive Date: 20151216
  Receipt Date: 20151216
  Transmission Date: 20160305
  Serious: No
  Sender: FDA-Public Use
  Company Number: US-RB-073592-15

PATIENT
  Age: 9 Year
  Sex: Female

DRUGS (2)
  1. DELSYM [Suspect]
     Active Substance: DEXTROMETHORPHAN
     Indication: PRODUCT USED FOR UNKNOWN INDICATION
     Dosage: 12.50ML. PATIENT WAS ADMINISTERED 2.5 TEASPOON OF THE DRUG,FREQUENCY UNK
     Route: 065
     Dates: start: 20150210
  2. TYLENOL [Concomitant]
     Active Substance: ACETAMINOPHEN
     Indication: PRODUCT USED FOR UNKNOWN INDICATION
     Dosage: . DOSING UNKNOWN,FREQUENCY UNK
     Route: 065

REACTIONS (3)
  - Overdose [Recovered/Resolved]
  - No adverse event [Recovered/Resolved]
  - Drug administered to patient of inappropriate age [None]

NARRATIVE: CASE EVENT DATE: 20150210
